FAERS Safety Report 13919035 (Version 1)
Quarter: 2017Q3

REPORT INFORMATION
  Report Type: Spontaneous
  Country: US (occurrence: US)
  Receive Date: 20170830
  Receipt Date: 20170830
  Transmission Date: 20171127
  Serious: No
  Sender: FDA-Public Use
  Company Number: US-TAKEDA-2017TUS017619

PATIENT

DRUGS (1)
  1. ROZEREM [Suspect]
     Active Substance: RAMELTEON
     Indication: PRODUCT USED FOR UNKNOWN INDICATION
     Dosage: UNK
     Route: 065
     Dates: end: 20170507

REACTIONS (6)
  - Drug ineffective [Unknown]
  - Insomnia [Recovering/Resolving]
  - Weight increased [Unknown]
  - Abdominal pain upper [Unknown]
  - Dependence [Unknown]
  - Incorrect drug administration duration [Unknown]
